FAERS Safety Report 8831462 (Version 1)
Quarter: 2012Q4

REPORT INFORMATION
  Report Type: 
  Country: US (occurrence: US)
  Receive Date: 20121009
  Receipt Date: 20121009
  Transmission Date: 20130627
  Serious: Yes (Death, Hospitalization)
  Sender: FDA-Public Use
  Company Number: US-ROCHE-1130909

PATIENT
  Sex: Male

DRUGS (3)
  1. RITUXAN [Suspect]
     Indication: ANAEMIA HAEMOLYTIC AUTOIMMUNE
     Route: 065
  2. RITUXAN [Suspect]
     Indication: OFF LABEL USE
  3. CYCLOSPORIN [Concomitant]

REACTIONS (4)
  - Death [Fatal]
  - Vomiting [Unknown]
  - Anaemia [Unknown]
  - Abdominal pain [Unknown]
